FAERS Safety Report 5501896-2 (Version None)
Quarter: 2007Q4

REPORT INFORMATION
  Report Type: 
  Country: None (occurrence: None)
  Receive Date: 20071030
  Receipt Date: 20071023
  Transmission Date: 20080405
  Serious: Yes (Other)
  Sender: FDA-Public Use
  Company Number: US-AVENTIS-200716016US

PATIENT
  Sex: Female
  Weight: 97.5 kg

DRUGS (3)
  1. FEXOFENADINE HYDROCHLORIDE [Suspect]
     Route: 048
     Dates: start: 20070624, end: 20070807
  2. HERBAL PREPARATION [Suspect]
     Dosage: DOSE: UNK
     Dates: end: 20070713
  3. ACIPHEX [Concomitant]
     Dosage: DOSE: UNK

REACTIONS (2)
  - NERVOUSNESS [None]
  - PANIC ATTACK [None]
